FAERS Safety Report 18678617 (Version 1)
Quarter: 2020Q4

REPORT INFORMATION
  Report Type: Other
  Country: FR (occurrence: FR)
  Receive Date: 20201230
  Receipt Date: 20201230
  Transmission Date: 20210114
  Serious: Yes (Other)
  Sender: FDA-Public Use
  Company Number: FR-MACLEODS PHARMACEUTICALS US LTD-MAC2020029600

PATIENT

DRUGS (4)
  1. TENOFOVIR [Suspect]
     Active Substance: TENOFOVIR
     Indication: HIV INFECTION
     Dosage: UNK, 1 COURSE, EXPOSURE PRIOR TO CONCEPTION AND EARLIEST EXPOSURE TRIMESTER ARE UNKNOWN
     Route: 065
  2. EMTRICITABINE [Suspect]
     Active Substance: EMTRICITABINE
     Indication: HIV INFECTION
     Dosage: UNK, 1 COURSE, EXPOSURE PRIOR TO CONCEPTION AND EARLIEST EXPOSURE TRIMESTER ARE UNKNOWN
     Route: 065
  3. PREZISTA [Suspect]
     Active Substance: DARUNAVIR ETHANOLATE
     Indication: HIV INFECTION
     Dosage: UNK, 1 COURSE, EXPOSURE PRIOR TO CONCEPTION AND EARLIEST EXPOSURE TRIMESTER ARE UNKNOWN
     Route: 048
  4. NORVIR [Suspect]
     Active Substance: RITONAVIR
     Indication: HIV INFECTION
     Dosage: UNK, 1 COURSE, EXPOSURE PRIOR TO CONCEPTION AND EARLIEST EXPOSURE TRIMESTER ARE UNKNOWN
     Route: 065

REACTIONS (2)
  - Stillbirth [Unknown]
  - Maternal exposure during pregnancy [Unknown]
